FAERS Safety Report 6715655-6 (Version None)
Quarter: 2010Q2

REPORT INFORMATION
  Report Type: 
  Country: None (occurrence: None)
  Receive Date: 20100507
  Receipt Date: 20100430
  Transmission Date: 20101027
  Serious: Yes (Other)
  Sender: FDA-Public Use
  Company Number: US-AMGEN-QUU409632

PATIENT
  Sex: Male
  Weight: 87.5 kg

DRUGS (9)
  1. NPLATE [Suspect]
     Indication: IDIOPATHIC THROMBOCYTOPENIC PURPURA
     Dates: start: 20091124
  2. PREDNISONE [Concomitant]
     Dates: end: 20100101
  3. PRILOSEC [Concomitant]
  4. NORCO [Concomitant]
  5. AMBIEN [Concomitant]
  6. SENOKOT [Concomitant]
  7. VITAMIN B6 [Concomitant]
  8. FOLIC ACID [Concomitant]
  9. MULTI-VITAMINS [Concomitant]

REACTIONS (6)
  - ARTHRALGIA [None]
  - CHILLS [None]
  - PETECHIAE [None]
  - PLATELET COUNT DECREASED [None]
  - SKIN WARM [None]
  - URTICARIA [None]
